FAERS Safety Report 10663608 (Version 1)
Quarter: 2014Q4

REPORT INFORMATION
  Report Type: Report from Study
  Country: US (occurrence: US)
  Receive Date: 20141219
  Receipt Date: 20141219
  Transmission Date: 20150529
  Serious: Yes (Other)
  Sender: FDA-Public Use
  Company Number: US-AMGEN INC.-USASL2014098304

PATIENT
  Age: 77 Year
  Sex: Female

DRUGS (1)
  1. ENBREL [Suspect]
     Active Substance: ETANERCEPT
     Indication: POLYARTHRITIS
     Dosage: 50 MG, QWK
     Route: 058

REACTIONS (3)
  - Cataract [Unknown]
  - Glaucoma [Unknown]
  - Sciatica [Unknown]

NARRATIVE: CASE EVENT DATE: 201408
